FAERS Safety Report 6822262-3 (Version None)
Quarter: 2010Q3

REPORT INFORMATION
  Report Type: 
  Country: None (occurrence: None)
  Receive Date: 20100707
  Receipt Date: 20100707
  Transmission Date: 20110219
  Serious: No
  Sender: FDA-Public Use
  Company Number: None

PATIENT
  Age: 58 Year
  Sex: Female
  Weight: 73.4827 kg

DRUGS (1)
  1. EVISTA [Suspect]
     Indication: OSTEOPENIA
     Dosage: 60 MG ONCE DAILY P.O. 5 ATTEMPTS
     Route: 048

REACTIONS (1)
  - INFLUENZA LIKE ILLNESS [None]
